FAERS Safety Report 8379640-3 (Version None)
Quarter: 2012Q2

REPORT INFORMATION
  Report Type: 
  Country: None (occurrence: None)
  Receive Date: 20120523
  Receipt Date: 20120514
  Transmission Date: 20120825
  Serious: Yes (Other)
  Sender: FDA-Public Use
  Company Number: AU-JNJFOC-20120512889

PATIENT
  Age: 22 Month
  Sex: Male

DRUGS (1)
  1. NICOTINE [Suspect]
     Indication: ACCIDENTAL EXPOSURE
     Dosage: APPROXIMATELY 4 PIECES OF 4 MG GUM
     Route: 048

REACTIONS (3)
  - ACCIDENTAL DRUG INTAKE BY CHILD [None]
  - VOMITING [None]
  - MALAISE [None]
